FAERS Safety Report 5589672-6 (Version None)
Quarter: 2008Q1

REPORT INFORMATION
  Report Type: 
  Country: None (occurrence: None)
  Receive Date: 20080114
  Receipt Date: 20080103
  Transmission Date: 20080703
  Serious: Yes (Other)
  Sender: FDA-Public Use
  Company Number: B0376991A

PATIENT
  Sex: Male

DRUGS (1)
  1. PAROXETINE [Suspect]
     Indication: ANXIETY
     Dosage: 20MG PER DAY
     Dates: start: 20000616, end: 20010101

REACTIONS (14)
  - AGGRESSION [None]
  - AMNESIA [None]
  - BALANCE DISORDER [None]
  - COMMUNICATION DISORDER [None]
  - COORDINATION ABNORMAL [None]
  - DRUG WITHDRAWAL SYNDROME [None]
  - DYSARTHRIA [None]
  - HEADACHE [None]
  - INCOHERENT [None]
  - PAIN [None]
  - PARAESTHESIA [None]
  - PHOTOSENSITIVITY REACTION [None]
  - SUICIDAL IDEATION [None]
  - VISUAL DISTURBANCE [None]
